FAERS Safety Report 16544377 (Version 1)
Quarter: 2019Q3

REPORT INFORMATION
  Report Type: Spontaneous
  Country: IE (occurrence: IE)
  Receive Date: 20190709
  Receipt Date: 20190709
  Transmission Date: 20191004
  Serious: Yes (Other)
  Sender: FDA-Public Use
  Company Number: IE-ASTRAZENECA-2019SE96042

PATIENT
  Age: 73 Year
  Sex: Female
  Weight: 67 kg

DRUGS (13)
  1. ATORVASTATIN [Concomitant]
     Active Substance: ATORVASTATIN
     Dosage: ((GENERIC)),40 MG AT NIGHT
  2. COVERSYL ARGININE [Concomitant]
     Active Substance: PERINDOPRIL ARGININE
     Dosage: 10.0MG UNKNOWN
  3. LANSOPRAZOLE. [Concomitant]
     Active Substance: LANSOPRAZOLE
     Dosage: (GENERIC), 30 MG UNKNOWN
  4. DIAMICRON MR [Concomitant]
     Active Substance: GLICLAZIDE
  5. FORXIGA [Suspect]
     Active Substance: DAPAGLIFLOZIN
     Indication: DIABETES MELLITUS
     Dosage: 10.0MG UNKNOWN
     Route: 048
     Dates: start: 20190306, end: 20190605
  6. PLAVIX [Concomitant]
     Active Substance: CLOPIDOGREL BISULFATE
     Dosage: 75.0MG UNKNOWN
  7. METHOTREXATE. [Concomitant]
     Active Substance: METHOTREXATE
     Dosage: 2.5 MG 6 TABLETS WEEKLY - TOTAL OF 15MG WEEKLY
     Dates: start: 201410
  8. JANUMET [Concomitant]
     Active Substance: METFORMIN HYDROCHLORIDE\SITAGLIPTIN PHOSPHATE
     Dosage: 50MG / 1000MG
  9. KALCIPOS-D FORTE [Concomitant]
     Active Substance: CALCIUM CARBONATE\CHOLECALCIFEROL
     Dosage: 500MG + 800 UNITS ONE TO BE TAKEN DAILY
     Dates: start: 201501
  10. ALENDRONATE [Concomitant]
     Active Substance: ALENDRONATE SODIUM
     Dosage: 70 MG ONCE WEEKLY AS PER SPECIAL INSTRUCTIONS, (GENERIC)
     Dates: start: 201501
  11. NICORETTE [Concomitant]
     Active Substance: NICOTINE
     Dosage: 15 MG INHALER REFILL
  12. DONEPEZIL. [Concomitant]
     Active Substance: DONEPEZIL
     Dates: start: 201610
  13. FOLIC ACID. [Concomitant]
     Active Substance: FOLIC ACID

REACTIONS (3)
  - Hypoaesthesia [Not Recovered/Not Resolved]
  - Vision blurred [Not Recovered/Not Resolved]
  - Oral candidiasis [Not Recovered/Not Resolved]

NARRATIVE: CASE EVENT DATE: 20190516
